FAERS Safety Report 23677881 (Version 1)
Quarter: 2024Q1

REPORT INFORMATION
  Report Type: Spontaneous
  Country: US (occurrence: US)
  Receive Date: 20240327
  Receipt Date: 20240327
  Transmission Date: 20240410
  Serious: Yes (Other)
  Sender: FDA-Public Use
  Company Number: US-SIMILASAN-2024USSIMSPO00054

PATIENT

DRUGS (1)
  1. HOMEOPATHICS [Suspect]
     Active Substance: ARNICA MONTANA\CAUSTICUM\COMFREY ROOT\HOMEOPATHICS\LEDUM PALUSTRE TWIG\PSEUDOGNAPHALIUM OBTUSIFOLIUM
     Indication: Product used for unknown indication
     Dosage: 2-5 DROPS
     Route: 001

REACTIONS (3)
  - Deafness unilateral [Unknown]
  - Ear discomfort [Recovered/Resolved]
  - Wrong technique in product usage process [Unknown]
